FAERS Safety Report 11535041 (Version 2)
Quarter: 2015Q4

REPORT INFORMATION
  Report Type: Spontaneous
  Country: US (occurrence: US)
  Receive Date: 20150922
  Receipt Date: 20151021
  Transmission Date: 20160304
  Serious: Yes (Hospitalization)
  Sender: FDA-Public Use
  Company Number: US-JNJFOC-20150911221

PATIENT
  Sex: Female
  Weight: 116 kg

DRUGS (30)
  1. TRICOR [Concomitant]
     Active Substance: FENOFIBRATE
     Dosage: WITH MEAL
     Route: 048
     Dates: start: 20150710
  2. BYDUREON [Concomitant]
     Active Substance: EXENATIDE
     Route: 058
     Dates: start: 20150917
  3. INVOKANA [Suspect]
     Active Substance: CANAGLIFLOZIN
     Indication: TYPE 2 DIABETES MELLITUS
     Route: 048
     Dates: start: 20150717, end: 20150810
  4. LOVAZA [Concomitant]
     Active Substance: OMEGA-3-ACID ETHYL ESTERS
     Route: 048
  5. NEURONTIN [Concomitant]
     Active Substance: GABAPENTIN
     Route: 048
  6. GLUCOPHAGE [Concomitant]
     Active Substance: METFORMIN HYDROCHLORIDE
     Dosage: WITH MEALS
     Route: 048
  7. VICTOZA [Concomitant]
     Active Substance: LIRAGLUTIDE
     Indication: PRODUCT USED FOR UNKNOWN INDICATION
     Route: 065
  8. VITAMIN D3 [Concomitant]
     Active Substance: CHOLECALCIFEROL
     Route: 048
  9. MEVACOR [Concomitant]
     Active Substance: LOVASTATIN
     Route: 048
  10. SPIRONOLACTONE + HCTZ [Concomitant]
     Dosage: 25-25 MG TABLET
     Route: 048
     Dates: start: 20150709
  11. FISH OIL [Concomitant]
     Active Substance: FISH OIL
     Route: 065
  12. NORETHINDRONE. [Concomitant]
     Active Substance: NORETHINDRONE
     Route: 048
  13. ASPIRIN. [Concomitant]
     Active Substance: ASPIRIN
     Route: 048
  14. A MULTIVITAMIN [Concomitant]
     Route: 065
  15. VITAMIN D [Concomitant]
     Active Substance: CHOLECALCIFEROL
     Route: 048
  16. CYANOCOBALAMIN. [Concomitant]
     Active Substance: CYANOCOBALAMIN
     Route: 048
  17. CYMBALTA [Concomitant]
     Active Substance: DULOXETINE HYDROCHLORIDE
     Route: 048
  18. BENADRYL [Concomitant]
     Active Substance: DIPHENHYDRAMINE HYDROCHLORIDE
     Route: 048
  19. LANTUS SOLOSTAR [Concomitant]
     Active Substance: INSULIN GLARGINE
     Dosage: 30 UNITS IN MORNING (AM) AND 40 UNITS IN EVENING (PM).
     Route: 058
     Dates: start: 20150717
  20. NEURONTIN [Concomitant]
     Active Substance: GABAPENTIN
     Route: 048
  21. THERAGRAN [Concomitant]
     Active Substance: VITAMINS
     Route: 048
  22. FERROUS SULFATE [Concomitant]
     Active Substance: FERROUS SULFATE\FERROUS SULFATE, DRIED
     Route: 048
  23. CLARITIN-D 12 HOUR [Concomitant]
     Active Substance: LORATADINE\PSEUDOEPHEDRINE SULFATE
     Route: 048
  24. VIMOVO [Concomitant]
     Active Substance: ESOMEPRAZOLE MAGNESIUM\NAPROXEN
     Dosage: BEFORE MEAL
     Route: 048
     Dates: start: 20150709
  25. MIRALAX [Concomitant]
     Active Substance: POLYETHYLENE GLYCOL 3350
     Dosage: 1 PACKET MIXED WITH 8 OUNCES OF FLUID
     Route: 048
  26. PRINIVIL [Concomitant]
     Active Substance: LISINOPRIL
     Route: 048
  27. K-DUR [Concomitant]
     Active Substance: POTASSIUM CHLORIDE
     Route: 048
  28. ZANAFLEX [Concomitant]
     Active Substance: TIZANIDINE HYDROCHLORIDE
     Route: 048
  29. MUPIROCIN. [Concomitant]
     Active Substance: MUPIROCIN
     Dosage: 2% OINTMENT, APPLIED EXTERNALLY TWICE DAILY, ON THE AFFECTED AREA.
     Route: 061
     Dates: start: 20150818
  30. PERI COLACE [Concomitant]
     Dosage: 1 TABLET IN THE EVENING AS NEEDED.
     Route: 048
     Dates: start: 20150720

REACTIONS (1)
  - Diabetic ketoacidosis [Recovered/Resolved]

NARRATIVE: CASE EVENT DATE: 2015
